FAERS Safety Report 6822140-X (Version None)
Quarter: 2010Q3

REPORT INFORMATION
  Report Type: 
  Country: None (occurrence: None)
  Receive Date: 20100708
  Receipt Date: 20100629
  Transmission Date: 20110219
  Serious: Yes (Other)
  Sender: FDA-Public Use
  Company Number: NL-JNJFOC-20100408001

PATIENT
  Sex: Male
  Weight: 75 kg

DRUGS (4)
  1. HALDOL [Suspect]
     Indication: DELUSION
     Route: 065
  2. HALDOL [Suspect]
     Route: 030
  3. PAROXETINE HCL [Suspect]
     Indication: MAJOR DEPRESSION
     Route: 065
  4. PROMETHAZINE [Suspect]
     Indication: SOMNOLENCE
     Route: 065

REACTIONS (4)
  - AGGRESSION [None]
  - HAEMORRHOIDS [None]
  - HOMICIDE [None]
  - IMPULSE-CONTROL DISORDER [None]
